FAERS Safety Report 5247783-9 (Version None)
Quarter: 2007Q1

REPORT INFORMATION
  Report Type: 
  Country: None (occurrence: None)
  Receive Date: 20070220
  Receipt Date: 20070205
  Transmission Date: 20070707
  Serious: Yes (Other)
  Sender: FDA-Public Use
  Company Number: 010524

PATIENT
  Sex: Male

DRUGS (3)
  1. DIDANOSINE [Suspect]
     Indication: HIV INFECTION
     Dosage: 1 CAPS., QD, ORAL
     Route: 048
     Dates: start: 19940101
  2. EPIVIR [Suspect]
     Indication: HIV INFECTION
     Dosage: UNK, UNK, ORAL
     Route: 048
  3. CRIXIVAN [Suspect]
     Indication: HIV INFECTION
     Dosage: UNK, UNK, ORAL
     Route: 048

REACTIONS (2)
  - CONDITION AGGRAVATED [None]
  - EYELID DISORDER [None]
